FAERS Safety Report 10182561 (Version 1)
Quarter: 2014Q2

REPORT INFORMATION
  Report Type: Spontaneous
  Country: US (occurrence: None)
  Receive Date: 20140519
  Receipt Date: 20140519
  Transmission Date: 20141212
  Serious: No
  Sender: FDA-Public Use
  Company Number: None

PATIENT
  Sex: Female

DRUGS (1)
  1. ENBREL SURECLICK 50MG AMGEN INC [Suspect]
     Dosage: 50MG, ONCE A WEEK, SUBCUTANEOUS
     Route: 058

REACTIONS (2)
  - Dry skin [None]
  - Pruritus [None]
